FAERS Safety Report 24144775 (Version 3)
Quarter: 2024Q3

REPORT INFORMATION
  Report Type: Report from Study
  Country: US (occurrence: US)
  Receive Date: 20240729
  Receipt Date: 20240831
  Transmission Date: 20241017
  Serious: Yes (Hospitalization, Other)
  Sender: ABBVIE
  Company Number: US-ABBVIE-5739362

PATIENT
  Age: 81 Year
  Sex: Male

DRUGS (2)
  1. IMBRUVICA [Suspect]
     Active Substance: IBRUTINIB
     Indication: Chronic lymphocytic leukaemia
     Route: 048
  2. IMBRUVICA [Suspect]
     Active Substance: IBRUTINIB
     Indication: Chronic lymphocytic leukaemia
     Route: 048
     Dates: start: 20220324

REACTIONS (5)
  - Haemorrhoids [Unknown]
  - Sepsis [Recovering/Resolving]
  - Haemorrhage [Recovering/Resolving]
  - Localised infection [Recovered/Resolved]
  - Procedural pain [Unknown]

NARRATIVE: CASE EVENT DATE: 20240819
